FAERS Safety Report 4966089-6 (Version None)
Quarter: 2006Q2

REPORT INFORMATION
  Report Type: 
  Country: None (occurrence: None)
  Receive Date: 20060403
  Receipt Date: 20060317
  Transmission Date: 20061013
  Serious: Yes (Hospitalization)
  Sender: FDA-Public Use
  Company Number: 223604

PATIENT
  Age: 41 Year
  Sex: Female

DRUGS (2)
  1. AVASTIN [Suspect]
     Indication: BREAST CANCER METASTATIC
     Dates: start: 20040331
  2. PACLITAXEL [Suspect]
     Indication: BREAST CANCER METASTATIC
     Dates: start: 20040331

REACTIONS (6)
  - BLOOD PRESSURE DIASTOLIC INCREASED [None]
  - CEREBRAL ISCHAEMIA [None]
  - DRUG SCREEN POSITIVE [None]
  - GRAND MAL CONVULSION [None]
  - MENTAL IMPAIRMENT [None]
  - NUCLEAR MAGNETIC RESONANCE IMAGING BRAIN ABNORMAL [None]
